FAERS Safety Report 21713240 (Version 1)
Quarter: 2022Q4

REPORT INFORMATION
  Report Type: Spontaneous
  Country: US (occurrence: None)
  Receive Date: 20221208
  Receipt Date: 20221208
  Transmission Date: 20230113
  Serious: Yes (Hospitalization)
  Sender: FDA-Public Use
  Company Number: None

PATIENT
  Age: 66 Year
  Sex: Male
  Weight: 87 kg

DRUGS (2)
  1. PIPERACILLIN. [Suspect]
     Active Substance: PIPERACILLIN SODIUM
     Indication: Infection
     Dosage: OTHER STRENGTH : 3GM/VIL;?FREQUENCY : 3 TIMES A DAY;?
     Route: 042
     Dates: start: 20221002, end: 20221024
  2. VANCOMYCIN [Suspect]
     Active Substance: VANCOMYCIN
     Dosage: OTHER STRENGTH : 1.5GMG/VIL;?
     Route: 042
     Dates: start: 20221002

REACTIONS (1)
  - Hepatic enzyme increased [None]

NARRATIVE: CASE EVENT DATE: 20221024
